FAERS Safety Report 9213877 (Version 1)
Quarter: 2013Q2

REPORT INFORMATION
  Report Type: Spontaneous
  Country: FR (occurrence: FR)
  Receive Date: 20130405
  Receipt Date: 20130405
  Transmission Date: 20140414
  Serious: Yes (Hospitalization)
  Sender: FDA-Public Use
  Company Number: FR-BRISTOL-MYERS SQUIBB COMPANY-18719443

PATIENT
  Age: 1 Day
  Sex: Female
  Weight: 3.18 kg

DRUGS (1)
  1. ABILIFY [Suspect]
     Route: 064
     Dates: start: 201110, end: 20120709

REACTIONS (1)
  - Foetal arrhythmia [Recovered/Resolved]
